FAERS Safety Report 6369891-1 (Version None)
Quarter: 2009Q3

REPORT INFORMATION
  Report Type: 
  Country: None (occurrence: None)
  Receive Date: 20090923
  Receipt Date: 20070919
  Transmission Date: 20100115
  Serious: Yes (Other)
  Sender: FDA-Public Use
  Company Number: US-ASTRAZENECA-2006UW11014

PATIENT
  Sex: Female
  Weight: 75.6 kg

DRUGS (12)
  1. SEROQUEL [Suspect]
     Indication: SLEEP DISORDER
     Dosage: 25-100 MG
     Route: 048
     Dates: start: 20030310
  2. SEROQUEL [Suspect]
     Indication: DEPRESSION
     Dosage: 25-100 MG
     Route: 048
     Dates: start: 20030310
  3. SEROQUEL [Suspect]
     Indication: ANXIETY
     Dosage: 25-100 MG
     Route: 048
     Dates: start: 20030310
  4. SEROQUEL [Suspect]
     Route: 048
     Dates: end: 20050101
  5. SEROQUEL [Suspect]
     Route: 048
     Dates: end: 20050101
  6. SEROQUEL [Suspect]
     Route: 048
     Dates: end: 20050101
  7. LIPITOR [Concomitant]
  8. IMITREX [Concomitant]
  9. AMBIEN [Concomitant]
  10. NADOLOL [Concomitant]
  11. LOTREL [Concomitant]
  12. DEPAKOTE [Concomitant]

REACTIONS (2)
  - DIABETES MELLITUS [None]
  - DIABETIC KETOACIDOSIS [None]
